FAERS Safety Report 9442888 (Version 1)
Quarter: 2013Q3

REPORT INFORMATION
  Report Type: Spontaneous
  Country: US (occurrence: US)
  Receive Date: 20130806
  Receipt Date: 20130806
  Transmission Date: 20140515
  Serious: Yes (Other)
  Sender: FDA-Public Use
  Company Number: US-PFIZER INC-2013226972

PATIENT
  Sex: Female

DRUGS (5)
  1. LIPITOR [Suspect]
     Dosage: UNK
  2. CARDURA [Suspect]
     Dosage: UNK
  3. PREMARIN [Suspect]
     Dosage: UNK
  4. NEURONTIN [Suspect]
     Dosage: UNK
  5. CALAN SR [Suspect]
     Dosage: UNK

REACTIONS (1)
  - Arthropathy [Unknown]
